FAERS Safety Report 11550528 (Version 1)
Quarter: 2015Q3

REPORT INFORMATION
  Report Type: Spontaneous
  Country: US (occurrence: US)
  Receive Date: 20150903
  Receipt Date: 20150903
  Transmission Date: 20151125
  Serious: Yes (Other)
  Sender: FDA-Public Use
  Company Number: US-ELI_LILLY_AND_COMPANY-US201212004187

PATIENT
  Sex: Female

DRUGS (10)
  1. HUMALOG [Suspect]
     Active Substance: INSULIN LISPRO
     Indication: DIABETES MELLITUS
     Dosage: UNK UNK, PRN
     Dates: start: 2004
  2. METFORMIN [Concomitant]
     Active Substance: METFORMIN HYDROCHLORIDE
     Dosage: 500 MG, UNKNOWN
  3. ASPIRIN. [Concomitant]
     Active Substance: ASPIRIN
     Dosage: 81 MG, UNKNOWN
  4. PROCARDIA [Concomitant]
     Active Substance: NIFEDIPINE
     Dosage: UNK, UNKNOWN
  5. CARVEDILOL. [Concomitant]
     Active Substance: CARVEDILOL
     Dosage: UNK, UNKNOWN
  6. XANAX [Concomitant]
     Active Substance: ALPRAZOLAM
     Dosage: UNK, UNKNOWN
  7. PLAVIX [Concomitant]
     Active Substance: CLOPIDOGREL BISULFATE
     Dosage: UNK, UNKNOWN
  8. LANTUS [Concomitant]
     Active Substance: INSULIN GLARGINE
     Dosage: UNK, UNKNOWN
  9. LISINOPRIL. [Concomitant]
     Active Substance: LISINOPRIL
     Dosage: UNK, UNKNOWN
  10. BUSPAR [Concomitant]
     Active Substance: BUSPIRONE HYDROCHLORIDE
     Dosage: UNK, UNKNOWN

REACTIONS (3)
  - Blood glucose increased [Recovered/Resolved]
  - Blood glucose decreased [Recovered/Resolved]
  - Wrong drug administered [Recovered/Resolved]

NARRATIVE: CASE EVENT DATE: 20121209
